FAERS Safety Report 12439733 (Version 2)
Quarter: 2017Q1

REPORT INFORMATION
  Report Type: Report from Study
  Country: US (occurrence: US)
  Receive Date: 20160606
  Receipt Date: 20170302
  Transmission Date: 20170428
  Serious: Yes (Hospitalization)
  Sender: FDA-Public Use
  Company Number: US-ACTELION-A-NJ2016-137086

PATIENT
  Age: 20 Year
  Sex: Female
  Weight: 49.89 kg

DRUGS (4)
  1. TRACLEER [Suspect]
     Active Substance: BOSENTAN
     Indication: PULMONARY ARTERIAL HYPERTENSION
     Dosage: 125 MG, BID
     Route: 048
     Dates: start: 20110510
  2. COUMADIN [Concomitant]
     Active Substance: WARFARIN SODIUM
  3. REVATIO [Concomitant]
     Active Substance: SILDENAFIL CITRATE
  4. TYVASO [Concomitant]
     Active Substance: TREPROSTINIL

REACTIONS (8)
  - Oxygen saturation abnormal [Unknown]
  - Dyspnoea [Unknown]
  - Vision blurred [Unknown]
  - Chest pain [Unknown]
  - Cough [Unknown]
  - Influenza [Unknown]
  - Pneumonia [Unknown]
  - Dizziness [Unknown]
